FAERS Safety Report 5493060-0 (Version None)
Quarter: 2007Q4

REPORT INFORMATION
  Report Type: 
  Country: None (occurrence: None)
  Receive Date: 20071017
  Receipt Date: 20071011
  Transmission Date: 20080405
  Serious: Yes (Hospitalization)
  Sender: FDA-Public Use
  Company Number: 2007332619

PATIENT
  Sex: Male

DRUGS (1)
  1. ROGAINE [Suspect]
     Indication: ALOPECIA
     Dosage: UNSPECIFIED; TOPICAL
     Route: 061

REACTIONS (1)
  - ERYTHEMA [None]
